FAERS Safety Report 13938492 (Version 1)
Quarter: 2017Q3

REPORT INFORMATION
  Report Type: Spontaneous
  Country: US (occurrence: US)
  Receive Date: 20170905
  Receipt Date: 20170905
  Transmission Date: 20171127
  Serious: Yes (Hospitalization)
  Sender: FDA-Public Use
  Company Number: None

PATIENT
  Age: 56 Year
  Sex: Female
  Weight: 69.75 kg

DRUGS (5)
  1. COQ10 [Concomitant]
     Active Substance: UBIDECARENONE
  2. VITAMIN D [Concomitant]
     Active Substance: CHOLECALCIFEROL
  3. SERTRALINE HCL [Suspect]
     Active Substance: SERTRALINE HYDROCHLORIDE
     Indication: MENOPAUSAL SYMPTOMS
     Dosage: ?          QUANTITY:1 TABLET(S);?
     Route: 048
     Dates: start: 20140925, end: 20141123
  4. LOSORTAN [Concomitant]
  5. VITAMINS B-COMPLEX [Concomitant]

REACTIONS (16)
  - Insomnia [None]
  - Dizziness [None]
  - Arthralgia [None]
  - Pruritus [None]
  - Drug dose titration not performed [None]
  - Confusional state [None]
  - Drug withdrawal syndrome [None]
  - Paraesthesia [None]
  - Thirst [None]
  - Fatigue [None]
  - Libido decreased [None]
  - Heart rate increased [None]
  - Chills [None]
  - Disturbance in attention [None]
  - Anxiety [None]
  - Myalgia [None]

NARRATIVE: CASE EVENT DATE: 20141205
